FAERS Safety Report 15151944 (Version 1)
Quarter: 2018Q3

REPORT INFORMATION
  Report Type: Spontaneous
  Country: US (occurrence: US)
  Receive Date: 20180717
  Receipt Date: 20180717
  Transmission Date: 20181010
  Serious: Yes (Hospitalization)
  Sender: FDA-Public Use
  Company Number: US-HLSUS-2018-US-000547

PATIENT
  Age: 61 Year
  Sex: Female

DRUGS (5)
  1. GASTROZEPIN [Suspect]
     Active Substance: PIRENZEPINE HYDROCHLORIDE
     Indication: PRODUCT USED FOR UNKNOWN INDICATION
     Dosage: 50MG,QD
     Route: 048
     Dates: start: 2015
  2. PANTOZOL [Concomitant]
     Active Substance: PANTOPRAZOLE SODIUM
     Dates: start: 2015
  3. CLOZAPINE. [Suspect]
     Active Substance: CLOZAPINE
     Indication: PRODUCT USED FOR UNKNOWN INDICATION
     Dosage: 300MG, QD
     Route: 065
  4. DIPIPERON [Suspect]
     Active Substance: PIPAMPERONE
     Indication: PRODUCT USED FOR UNKNOWN INDICATION
     Dosage: 40MG, QD
     Route: 048
     Dates: start: 2015
  5. ABILIFY [Suspect]
     Active Substance: ARIPIPRAZOLE
     Indication: PRODUCT USED FOR UNKNOWN INDICATION
     Dosage: 30MG, QD
     Route: 048
     Dates: start: 2016

REACTIONS (14)
  - Schizophrenia [Unknown]
  - Automatism epileptic [Unknown]
  - Sleep deficit [Unknown]
  - Head injury [Unknown]
  - Generalised tonic-clonic seizure [Recovered/Resolved]
  - Unresponsive to stimuli [Unknown]
  - Agitation [Unknown]
  - Enuresis [Unknown]
  - Restlessness [Unknown]
  - Generalised tonic-clonic seizure [Recovered/Resolved]
  - Unevaluable event [Unknown]
  - Condition aggravated [Unknown]
  - Eye movement disorder [Unknown]
  - Anxiety [Unknown]

NARRATIVE: CASE EVENT DATE: 20171229
